FAERS Safety Report 7209895-X (Version None)
Quarter: 2011Q1

REPORT INFORMATION
  Report Type: 
  Country: None (occurrence: None)
  Receive Date: 20110105
  Receipt Date: 20101223
  Transmission Date: 20110831
  Serious: Yes (Hospitalization)
  Sender: FDA-Public Use
  Company Number: US-BIOGENIDEC-2010BI044876

PATIENT
  Age: 53 Year
  Sex: Female
  Weight: 96 kg

DRUGS (22)
  1. SENNA [Concomitant]
     Route: 048
  2. HYDROMORPHONE HCL [Concomitant]
     Route: 048
  3. BACLOFEN [Concomitant]
     Route: 048
  4. CLONAZEPAM [Concomitant]
     Route: 048
  5. ESTRADIOL [Concomitant]
     Route: 048
  6. MS CONTIN [Concomitant]
     Route: 048
  7. TIZANIDINE HCL [Concomitant]
     Indication: MUSCLE SPASMS
     Route: 048
  8. ACETAMINOPHEN [Concomitant]
     Route: 048
  9. DOCUSATE [Concomitant]
     Route: 048
  10. TRIAMTERENE [Concomitant]
     Route: 048
  11. BISACODYL [Concomitant]
     Indication: CONSTIPATION
     Route: 048
  12. TYSABRI [Suspect]
     Indication: MULTIPLE SCLEROSIS
     Route: 042
     Dates: start: 20090408, end: 20100517
  13. HYDROCHLOROTHIAZIDE [Concomitant]
     Route: 048
  14. MULTI-VITAMIN [Concomitant]
     Route: 048
  15. HYDROMORPHONE HCL [Concomitant]
  16. HYDROXYZINE [Concomitant]
     Indication: INSOMNIA
     Route: 048
  17. CLONAZEPAM [Concomitant]
     Route: 048
  18. MILK OF MAGNESIA [Concomitant]
  19. MIRTAZAPINE [Concomitant]
     Route: 048
  20. MODAFINIL [Concomitant]
     Route: 048
  21. CITALOPRAM [Concomitant]
     Route: 048
  22. HYDROMORPHONE HCL [Concomitant]
     Indication: PAIN
     Route: 042
     Dates: start: 20101012

REACTIONS (4)
  - ESCHERICHIA INFECTION [None]
  - STAPHYLOCOCCAL INFECTION [None]
  - INFECTION [None]
  - INTERVERTEBRAL DISC DEGENERATION [None]
